FAERS Safety Report 18635955 (Version 1)
Quarter: 2020Q4

REPORT INFORMATION
  Report Type: Spontaneous
  Country: US (occurrence: US)
  Receive Date: 20201218
  Receipt Date: 20201218
  Transmission Date: 20210114
  Serious: Yes (Other)
  Sender: FDA-Public Use
  Company Number: US-SA-2020SA359614

PATIENT

DRUGS (2)
  1. LANTUS SOLOSTAR [Suspect]
     Active Substance: INSULIN GLARGINE
     Indication: DIABETES MELLITUS
     Dosage: 30 IU, QD (AT NIGHT)
     Route: 065
     Dates: start: 2019
  2. NOVOLOG [Concomitant]
     Active Substance: INSULIN ASPART
     Dosage: 4 UNITS PER MEAL, THREE TIMES A DAY
     Route: 065

REACTIONS (5)
  - Glaucoma [Unknown]
  - Product dose omission issue [Unknown]
  - Cataract [Unknown]
  - Blood glucose increased [Unknown]
  - Blood pressure increased [Unknown]
